FAERS Safety Report 5108720-0 (Version None)
Quarter: 2006Q3

REPORT INFORMATION
  Report Type: 
  Country: None (occurrence: None)
  Receive Date: 20060731
  Receipt Date: 20060607
  Transmission Date: 20061208
  Serious: No
  Sender: FDA-Public Use
  Company Number: 2006PV015166

PATIENT
  Age: 45 Year
  Sex: Female
  Weight: 109.7705 kg

DRUGS (9)
  1. BYETTA [Suspect]
     Indication: DIABETES MELLITUS NON-INSULIN-DEPENDENT
     Dosage: 10 MCG;BID;SC
     Route: 058
     Dates: start: 20060401, end: 20060626
  2. GLUCOPHAGE XR [Concomitant]
  3. NOVOLOG INSULIN PUMP [Concomitant]
  4. DIOVAN [Concomitant]
  5. PREMARIN [Concomitant]
  6. ZETIA [Concomitant]
  7. PREDNISONE TAB [Concomitant]
  8. IMITREX [Concomitant]
  9. .. [Concomitant]

REACTIONS (4)
  - BLOOD GLUCOSE INCREASED [None]
  - DYSPNOEA [None]
  - ISCHAEMIA [None]
  - NAUSEA [None]
